FAERS Safety Report 6317656-9 (Version None)
Quarter: 2009Q3

REPORT INFORMATION
  Report Type: 
  Country: None (occurrence: None)
  Receive Date: 20090821
  Receipt Date: 20090819
  Transmission Date: 20100115
  Serious: Yes (Life-Threatening)
  Sender: FDA-Public Use
  Company Number: GB-ASTRAZENECA-2009SE08865

PATIENT
  Age: 82 Year
  Sex: Male

DRUGS (2)
  1. ROSUVASTATIN [Suspect]
     Route: 048
  2. FUSIDIC ACID [Suspect]
     Indication: WOUND INFECTION

REACTIONS (4)
  - MUSCULAR WEAKNESS [None]
  - MYOSITIS [None]
  - RENAL FAILURE ACUTE [None]
  - RHABDOMYOLYSIS [None]
